FAERS Safety Report 9676423 (Version 6)
Quarter: 2014Q2

REPORT INFORMATION
  Report Type: Spontaneous
  Country: CA (occurrence: CA)
  Receive Date: 20131107
  Receipt Date: 20140519
  Transmission Date: 20141212
  Serious: No
  Sender: FDA-Public Use
  Company Number: CA-009507513-1309CAN008357

PATIENT
  Age: 61 Year
  Sex: Male

DRUGS (5)
  1. VICTRELIS [Suspect]
     Indication: CHRONIC HEPATITIS C
     Dosage: 800 MG, TID
     Route: 048
     Dates: start: 20130905
  2. PEGASYS [Suspect]
     Indication: CHRONIC HEPATITIS C
     Dosage: PRE/FILLED SYRINGE, 180 MICROGRAM, QW
     Route: 058
     Dates: start: 20130815
  3. COPEGUS [Suspect]
     Indication: CHRONIC HEPATITIS C
     Dosage: 1200MG, QD
     Route: 048
     Dates: start: 20130815
  4. FLORINEF [Concomitant]
     Indication: PRODUCT USED FOR UNKNOWN INDICATION
     Route: 065
  5. TECTA [Concomitant]
     Indication: PRODUCT USED FOR UNKNOWN INDICATION
     Route: 065

REACTIONS (5)
  - Syncope [Not Recovered/Not Resolved]
  - Hypotension [Not Recovered/Not Resolved]
  - Gingivitis [Not Recovered/Not Resolved]
  - Buccal mucosal roughening [Not Recovered/Not Resolved]
  - Pollakiuria [Not Recovered/Not Resolved]
